FAERS Safety Report 21131765 (Version 1)
Quarter: 2022Q3

REPORT INFORMATION
  Report Type: Other
  Country: None (occurrence: US)
  Receive Date: 20220726
  Receipt Date: 20220726
  Transmission Date: 20221027
  Serious: Yes (Other)
  Sender: FDA-Public Use
  Company Number: US-CHEMI SPA-2131247

PATIENT
  Age: 66 Year
  Sex: Male

DRUGS (2)
  1. TEMOZOLOMIDE [Suspect]
     Active Substance: TEMOZOLOMIDE
     Indication: Lung cancer metastatic
  2. CAPECITABINE [Concomitant]
     Active Substance: CAPECITABINE

REACTIONS (4)
  - Drug resistance [Unknown]
  - Disease progression [Unknown]
  - Hypermutation [Unknown]
  - Off label use [Unknown]
